FAERS Safety Report 7053610-X (Version None)
Quarter: 2010Q4

REPORT INFORMATION
  Report Type: 
  Country: None (occurrence: None)
  Receive Date: 20101020
  Receipt Date: 20101012
  Transmission Date: 20110411
  Serious: Yes (Death)
  Sender: FDA-Public Use
  Company Number: AU-ROCHE-733305

PATIENT
  Sex: Male
  Weight: 88.1 kg

DRUGS (23)
  1. PLACEBO (BEVACIZUMAB) [Suspect]
     Indication: DIFFUSE LARGE B-CELL LYMPHOMA
     Dosage: LAST DOSE PRIOR TO SAE: 03 MARCH 2010.
     Route: 042
     Dates: start: 20091201
  2. RITUXIMAB [Suspect]
     Indication: DIFFUSE LARGE B-CELL LYMPHOMA
     Dosage: LAST DOSE PRIOR TO SAE 03 MARCH 2010
     Route: 042
     Dates: start: 20091202
  3. DOXORUBICIN HCL [Suspect]
     Indication: DIFFUSE LARGE B-CELL LYMPHOMA
     Dosage: LAST DOSE PRIOR TO SAE: 23 DEC 2009
     Route: 042
     Dates: start: 20091202, end: 20100113
  4. DOXORUBICIN HCL [Suspect]
     Route: 042
     Dates: start: 20100113
  5. DOXORUBICIN HCL [Suspect]
     Dosage: LAST DOSE PRIOR TO SAE WAS 03 MARCH 2010
     Route: 042
  6. VINCRISTINE [Suspect]
     Indication: DIFFUSE LARGE B-CELL LYMPHOMA
     Dosage: LAST DOSE PRIOR TO SAE: 03 MARCH 2010
     Route: 042
     Dates: start: 20091202
  7. CYCLOPHOSPHAMIDE [Suspect]
     Indication: DIFFUSE LARGE B-CELL LYMPHOMA
     Dosage: LAST DOSE PRIOR TO SAE: 23 DEC 2009
     Route: 042
     Dates: start: 20091202, end: 20100113
  8. CYCLOPHOSPHAMIDE [Suspect]
     Route: 042
     Dates: start: 20100113
  9. CYCLOPHOSPHAMIDE [Suspect]
     Dosage: LAST DOSE PRIOR TO SAE WAS 03 MARCH 2010
     Route: 042
  10. PREDNISOLONE [Suspect]
     Indication: DIFFUSE LARGE B-CELL LYMPHOMA
     Dosage: FREQUENCY:1, 2, 3, 4, 5 EVERY 21 DAYS.  LAST DOSE PRIOR TO SAE: 07 MARCH 2010
     Route: 048
     Dates: start: 20091202
  11. ISOSORBIDE MONONITRATE [Concomitant]
  12. MICARDIS HCT [Concomitant]
     Dosage: TDD: 80/12.5 MG
  13. ASPIRIN [Concomitant]
  14. ESOMEPRAZOLE [Concomitant]
  15. AMLODIPINE [Concomitant]
     Dosage: DRUG NAME REPORTED AS: AMILODIPINE.
  16. METHYLDOPA [Concomitant]
  17. METOPROLOL [Concomitant]
  18. INSULIN NOVO RAPITARD [Concomitant]
     Dosage: TDD: 16 UNITS.  DRUG NAME REPORTED AS: INSULIN NOVO RAPID.
  19. ISOPHANE INSULIN [Concomitant]
     Dosage: TDD: 34 UNITS.
  20. XALATAN [Concomitant]
     Dosage: 1 DROP BOTH EYES.
  21. SERETIDE [Concomitant]
     Dosage: SERETIDE INHALER: 250/25 MG.
  22. VYTORIN [Concomitant]
     Dosage: 10/40 MG
  23. ALLOPURINOL [Concomitant]
     Dates: start: 20091130

REACTIONS (1)
  - DEATH [None]
